FAERS Safety Report 21433904 (Version 1)
Quarter: 2022Q4

REPORT INFORMATION
  Report Type: Spontaneous
  Country: IT (occurrence: IT)
  Receive Date: 20221010
  Receipt Date: 20221010
  Transmission Date: 20230112
  Serious: Yes (Other)
  Sender: FDA-Public Use
  Company Number: IT-NOVARTISPH-NVSC2022IT222779

PATIENT
  Age: 63 Year
  Sex: Female
  Weight: 110 kg

DRUGS (17)
  1. PACLITAXEL [Suspect]
     Active Substance: PACLITAXEL
     Indication: HER2 positive breast cancer
     Dosage: 80 MG, QW (MOST RECENT DOSE PRIOR TO THE EVENT: 24 SEP 2020)
     Route: 042
     Dates: start: 20170303, end: 20170413
  2. LAPATINIB [Suspect]
     Active Substance: LAPATINIB
     Indication: HER2 positive breast cancer
     Dosage: 1250 MG, QD (MOST RECENT DOSE OF LAPATINIB: 19 JUN 2020)
     Route: 048
     Dates: start: 20191209
  3. ANASTROZOLE [Suspect]
     Active Substance: ANASTROZOLE
     Indication: HER2 positive breast cancer
     Dosage: 1 MG, QD (MOST RECENT DOSE OF ANASTROZOLE: 12 JUN 2019)
     Route: 048
     Dates: start: 20170918
  4. CAPECITABINE [Suspect]
     Active Substance: CAPECITABINE
     Indication: HER2 positive breast cancer
     Dosage: 3000 MG, QD (MOST RECENT DOSE OF CAPECITABINE PRIOR TO THE EVENT: 18 JUN 2020)
     Route: 048
     Dates: start: 20191209, end: 20191230
  5. TRASTUZUMAB [Suspect]
     Active Substance: TRASTUZUMAB
     Indication: HER2 positive breast cancer
     Dosage: 800 MG, Q4W (MOST RECENT DOSE PRIOR TO THE EVENT: 20 JUN 2017)
     Route: 042
     Dates: start: 20170303, end: 20170303
  6. ADO-TRASTUZUMAB EMTANSINE [Suspect]
     Active Substance: ADO-TRASTUZUMAB EMTANSINE
     Indication: HER2 positive breast cancer
     Dosage: 270 MG, TIW (MOST RECENT DOSE OF TRASTUZUMAB EMTANSINE PRIOR TO THE EVENT: 04 SEP 2019)
     Route: 042
     Dates: start: 20190612, end: 20190703
  7. PERTUZUMAB [Suspect]
     Active Substance: PERTUZUMAB
     Indication: HER2 positive breast cancer
     Dosage: 840 MG, Q4W (MOST RECENT DOSE PRIOR TO THE EVENT: 20 JUN 2017)
     Route: 042
     Dates: start: 20170303, end: 20170303
  8. CHOLECALCIFEROL [Concomitant]
     Active Substance: CHOLECALCIFEROL
     Indication: Vitamin D deficiency
     Dosage: UNK
     Route: 065
     Dates: start: 20180320
  9. CITALOPRAM [Concomitant]
     Active Substance: CITALOPRAM HYDROBROMIDE
     Indication: Product used for unknown indication
     Dosage: UNK
     Route: 065
  10. CALCIUM CARBONATE\CHOLECALCIFEROL [Concomitant]
     Active Substance: CALCIUM CARBONATE\CHOLECALCIFEROL
     Indication: Vitamin D deficiency
     Dosage: UNK
     Route: 065
     Dates: start: 20180320
  11. ZOLEDRONIC ACID [Concomitant]
     Active Substance: ZOLEDRONIC ACID
     Indication: Product used for unknown indication
     Dosage: UNK
     Route: 065
     Dates: start: 20170215
  12. ZOLEDRONIC ACID [Concomitant]
     Active Substance: ZOLEDRONIC ACID
     Dosage: UNK
     Route: 065
     Dates: start: 20200120
  13. DEXAMETHASONE [Concomitant]
     Active Substance: DEXAMETHASONE
     Indication: Product used for unknown indication
     Dosage: UNK
     Route: 065
     Dates: start: 20200924
  14. TORSEMIDE [Concomitant]
     Active Substance: TORSEMIDE
     Indication: Hypertensive crisis
     Dosage: UNK
     Route: 065
     Dates: start: 20180313
  15. OMEPRAZOLE [Concomitant]
     Active Substance: OMEPRAZOLE
     Indication: Product used for unknown indication
     Dosage: UNK
     Route: 065
     Dates: start: 20191209
  16. CIMETIDINE [Concomitant]
     Active Substance: CIMETIDINE
     Indication: Product used for unknown indication
     Dosage: UNK
     Route: 065
     Dates: start: 20200924
  17. LOSARTAN [Concomitant]
     Active Substance: LOSARTAN
     Indication: Hypertensive crisis
     Dosage: UNK
     Route: 065
     Dates: start: 20180313

REACTIONS (1)
  - Bone marrow infiltration [Not Recovered/Not Resolved]

NARRATIVE: CASE EVENT DATE: 20210422
